FAERS Safety Report 23059573 (Version 5)
Quarter: 2024Q1

REPORT INFORMATION
  Report Type: Report from Study
  Country: US (occurrence: US)
  Receive Date: 20231012
  Receipt Date: 20240314
  Transmission Date: 20240410
  Serious: Yes (Hospitalization, Other)
  Sender: FDA-Public Use
  Company Number: US-UCBSA-2023035782

PATIENT
  Sex: Male
  Weight: 139 kg

DRUGS (2)
  1. ROTIGOTINE [Suspect]
     Active Substance: ROTIGOTINE
     Indication: Restless legs syndrome
     Dosage: 8 MILLIGRAM, ONCE DAILY (QD)
     Route: 062
  2. ROTIGOTINE [Suspect]
     Active Substance: ROTIGOTINE
     Indication: Parkinson^s disease

REACTIONS (8)
  - Fall [Not Recovered/Not Resolved]
  - Spinal fracture [Not Recovered/Not Resolved]
  - Fractured coccyx [Not Recovered/Not Resolved]
  - Spinal operation [Recovered/Resolved]
  - Surgery [Unknown]
  - Therapy interrupted [Unknown]
  - Product availability issue [Unknown]
  - Product use issue [Unknown]

NARRATIVE: CASE EVENT DATE: 20230101
